FAERS Safety Report 9617101 (Version 1)
Quarter: 2013Q4

REPORT INFORMATION
  Report Type: Spontaneous
  Country: US (occurrence: US)
  Receive Date: 20131011
  Receipt Date: 20131011
  Transmission Date: 20140711
  Serious: No
  Sender: FDA-Public Use
  Company Number: US-TARO-2013P1005317

PATIENT
  Age: 35 Year
  Sex: Female
  Weight: 70.76 kg

DRUGS (4)
  1. LORATADINE SYRUP (LORATADINE ORAL SOLUTION USP) 5MG/5ML [Suspect]
     Route: 055
     Dates: start: 20130428, end: 20130428
  2. LORATADINE SYRUP (LORATADINE ORAL SOLUTION USP) 5MG/5ML [Suspect]
     Route: 048
     Dates: start: 20130428, end: 20130428
  3. MULTIVITAMIN [Concomitant]
  4. UNSPECIFIED RESCUE INHALER [Concomitant]
     Indication: ASTHMA

REACTIONS (2)
  - Nasal discomfort [Recovered/Resolved]
  - Epistaxis [Recovered/Resolved]
